FAERS Safety Report 15057063 (Version 1)
Quarter: 2018Q2

REPORT INFORMATION
  Report Type: Spontaneous
  Country: US (occurrence: US)
  Receive Date: 20180604
  Receipt Date: 20180604
  Transmission Date: 20180711
  Serious: Yes (Hospitalization)
  Sender: FDA-Public Use
  Company Number: None

PATIENT
  Age: 11 Year
  Sex: Female
  Weight: 32.6 kg

DRUGS (1)
  1. LAMOTRIGINE. [Suspect]
     Active Substance: LAMOTRIGINE
     Indication: ANXIETY
     Route: 048
     Dates: start: 20180509, end: 20180512

REACTIONS (3)
  - Liver function test increased [None]
  - Pyrexia [None]
  - Drug-induced liver injury [None]

NARRATIVE: CASE EVENT DATE: 20180510
